FAERS Safety Report 17978463 (Version 1)
Quarter: 2020Q3

REPORT INFORMATION
  Report Type: Report from Study
  Country: US (occurrence: US)
  Receive Date: 20200703
  Receipt Date: 20200703
  Transmission Date: 20201103
  Serious: Yes (Death, Hospitalization)
  Sender: FDA-Public Use
  Company Number: US-EMD SERONO-9116517

PATIENT
  Age: 67 Year
  Sex: Male

DRUGS (2)
  1. REBIF [Suspect]
     Active Substance: INTERFERON BETA-1A
     Indication: MULTIPLE SCLEROSIS
     Route: 058
     Dates: start: 20170911, end: 20190904
  2. REBIF [Suspect]
     Active Substance: INTERFERON BETA-1A
     Route: 058
     Dates: start: 20200101

REACTIONS (10)
  - Myocardial infarction [Recovering/Resolving]
  - COVID-19 [Not Recovered/Not Resolved]
  - Death [Fatal]
  - Dehydration [Unknown]
  - Intestinal obstruction [Unknown]
  - Oxygen saturation decreased [Unknown]
  - Gastrointestinal perforation [Unknown]
  - Bladder disorder [Unknown]
  - Renal impairment [Unknown]
  - Blood potassium increased [Unknown]

NARRATIVE: CASE EVENT DATE: 201909
